FAERS Safety Report 13256611 (Version 3)
Quarter: 2017Q1

REPORT INFORMATION
  Report Type: Report from Study
  Country: US (occurrence: MX)
  Receive Date: 20170221
  Receipt Date: 20170324
  Transmission Date: 20170428
  Serious: Yes (Life-Threatening, Other)
  Sender: FDA-Public Use
  Company Number: US-SUNOVION-2017SUN000740

PATIENT
  Age: 42 Year
  Sex: Male
  Weight: 53 kg

DRUGS (6)
  1. MIFLONIDE [Suspect]
     Active Substance: BUDESONIDE
     Indication: OBLITERATIVE BRONCHIOLITIS
     Dosage: 200 UG, QD
     Route: 055
  2. INDACATEROL AND GLYCOPYRROLATE [Suspect]
     Active Substance: GLYCOPYRROLATE\INDACATEROL MALEATE
     Indication: OBLITERATIVE BRONCHIOLITIS
     Dosage: 1 DF (110/50 UG), QD
     Route: 055
  3. ALBUTEROL. [Concomitant]
     Active Substance: ALBUTEROL
     Dosage: UNK
  4. BETAMETHASONE. [Concomitant]
     Active Substance: BETAMETHASONE
     Dosage: UNK
  5. COMBIVENT [Concomitant]
     Active Substance: ALBUTEROL SULFATE\IPRATROPIUM BROMIDE
     Dosage: UNK
  6. SALBUTAMOL [Concomitant]
     Active Substance: ALBUTEROL
     Dosage: UNK

REACTIONS (27)
  - Irritability [Unknown]
  - Malaise [Unknown]
  - Cough [Not Recovered/Not Resolved]
  - Chest pain [Unknown]
  - Feeling abnormal [Not Recovered/Not Resolved]
  - Mood altered [Unknown]
  - Asphyxia [Unknown]
  - Obliterative bronchiolitis [Unknown]
  - Fatigue [Not Recovered/Not Resolved]
  - Bronchial disorder [Unknown]
  - Infection [Unknown]
  - Dyspnoea [Unknown]
  - Pyrexia [Unknown]
  - Sedation [Unknown]
  - Back pain [Unknown]
  - Chest discomfort [Unknown]
  - Glossodynia [Unknown]
  - Sensitivity to weather change [Not Recovered/Not Resolved]
  - Lung disorder [Unknown]
  - Stomatitis [Unknown]
  - Insomnia [Unknown]
  - Asthenia [Unknown]
  - Burning sensation [Unknown]
  - Painful respiration [Unknown]
  - Product use issue [Unknown]
  - Respiratory failure [Unknown]
  - Disease progression [Unknown]

NARRATIVE: CASE EVENT DATE: 201612
